FAERS Safety Report 23702938 (Version 1)
Quarter: 2024Q2

REPORT INFORMATION
  Report Type: Spontaneous
  Country: US (occurrence: None)
  Receive Date: 20240403
  Receipt Date: 20240403
  Transmission Date: 20240715
  Serious: No
  Sender: FDA-Public Use
  Company Number: None

PATIENT
  Age: 67 Year
  Sex: Female
  Weight: 83.6 kg

DRUGS (14)
  1. LEQEMBI [Suspect]
     Active Substance: LECANEMAB-IRMB
     Indication: Dementia Alzheimer^s type
     Dosage: OTHER FREQUENCY : EVERY OTHER WEEK;?
     Route: 041
  2. ASPIRIN [Concomitant]
     Active Substance: ASPIRIN
     Dates: start: 20210101
  3. CITALOPRAM [Concomitant]
     Active Substance: CITALOPRAM\CITALOPRAM HYDROBROMIDE
     Dates: start: 20190101
  4. ESTRACE [Concomitant]
     Active Substance: ESTRADIOL
     Dates: start: 20180101
  5. FAMOTIDINE [Concomitant]
     Active Substance: FAMOTIDINE
     Dates: start: 19950101
  6. GABAPENTIN [Concomitant]
     Active Substance: GABAPENTIN
     Dates: start: 20200101
  7. IBUPROFEN [Concomitant]
     Active Substance: IBUPROFEN
     Dates: start: 19950101
  8. MELATONIN [Concomitant]
     Active Substance: MELATONIN
     Dates: start: 20200101
  9. Novlnadex [Concomitant]
     Dates: start: 20230101
  10. Porlia [Concomitant]
     Dates: start: 20200101
  11. PROVIGIL [Concomitant]
     Active Substance: MODAFINIL
     Dates: start: 20200101
  12. ROSUVASTATIN [Concomitant]
     Active Substance: ROSUVASTATIN
     Dates: start: 20220101
  13. SYNTHROID [Concomitant]
     Active Substance: LEVOTHYROXINE SODIUM
     Dates: start: 20180101
  14. SYSTANE (HYPROMELLOSE 2910 (4000 MPA.S)) [Concomitant]
     Active Substance: HYPROMELLOSE 2910 (4000 MPA.S)
     Dates: start: 20200101

REACTIONS (6)
  - Infusion related reaction [None]
  - Back pain [None]
  - Pain [None]
  - Pain in extremity [None]
  - Dysphagia [None]
  - Therapy cessation [None]

NARRATIVE: CASE EVENT DATE: 20240402
